FAERS Safety Report 10187428 (Version 1)
Quarter: 2014Q2

REPORT INFORMATION
  Report Type: Spontaneous
  Country: US (occurrence: None)
  Receive Date: 20140520
  Receipt Date: 20140520
  Transmission Date: 20141212
  Serious: Yes (Other)
  Sender: FDA-Public Use
  Company Number: 201405019

PATIENT
  Age: 42 Year
  Sex: Male

DRUGS (1)
  1. TESTIM [Suspect]
     Indication: BLOOD TESTOSTERONE DECREASED
     Dates: start: 201305, end: 20130929

REACTIONS (6)
  - Cerebrovascular accident [None]
  - Thrombosis [None]
  - Myocardial ischaemia [None]
  - Pleurisy [None]
  - Injury [None]
  - Economic problem [None]
